FAERS Safety Report 10100899 (Version 1)
Quarter: 2014Q2

REPORT INFORMATION
  Report Type: Spontaneous
  Country: FR (occurrence: FR)
  Receive Date: 20140423
  Receipt Date: 20140423
  Transmission Date: 20141212
  Serious: Yes (Hospitalization)
  Sender: FDA-Public Use
  Company Number: PHHY2014FR048775

PATIENT
  Age: 78 Year
  Sex: Male

DRUGS (5)
  1. CLOZAPINE [Suspect]
     Indication: DEMENTIA
     Dosage: 25 MG, QD
     Route: 048
     Dates: start: 20140320, end: 20140401
  2. ALPRAZOLAM SANDOZ [Suspect]
     Indication: ANXIETY
     Dosage: 0.25 MG, QD
     Route: 048
     Dates: start: 20140309, end: 20140401
  3. AMOXICILLIN TRIHYDRATE+POTASSIUM CLAVULANATE SANDOZ [Suspect]
     Indication: URINARY TRACT INFECTION
     Dosage: 3 G, QD
     Route: 042
     Dates: start: 20140322, end: 20140328
  4. INEXIUM [Concomitant]
     Indication: PRODUCT USED FOR UNKNOWN INDICATION
     Route: 065
  5. AVODART [Concomitant]
     Indication: PRODUCT USED FOR UNKNOWN INDICATION
     Route: 065

REACTIONS (2)
  - Transaminases increased [Recovered/Resolved]
  - Gamma-glutamyltransferase increased [Recovered/Resolved]
